FAERS Safety Report 5130616-9 (Version None)
Quarter: 2006Q4

REPORT INFORMATION
  Report Type: 
  Country: None (occurrence: None)
  Receive Date: 20061018
  Receipt Date: 20061018
  Transmission Date: 20070319
  Serious: Yes (Hospitalization)
  Sender: FDA-Public Use
  Company Number: None

PATIENT
  Age: 55 Year
  Sex: Male
  Weight: 88.8 kg

DRUGS (3)
  1. ERBITUX [Suspect]
     Indication: PANCREATIC CARCINOMA
     Dosage: 400MG/M2X1, 250MG/M2 WEEKLY IV DRIP
     Route: 041
     Dates: start: 20060920, end: 20061010
  2. GEMCITABINE [Suspect]
     Dosage: 50MG/M2 2 X A WEEK IV DRIP
     Route: 041
     Dates: start: 20060926, end: 20061010
  3. RADIATION THERAPY [Concomitant]

REACTIONS (1)
  - GOUT [None]
